FAERS Safety Report 10525111 (Version 1)
Quarter: 2014Q4

REPORT INFORMATION
  Report Type: Spontaneous
  Country: FR (occurrence: None)
  Receive Date: 20141015
  Receipt Date: 20141015
  Transmission Date: 20150528
  Serious: Yes (Hospitalization)
  Sender: FDA-Public Use
  Company Number: CLINIGEN-003433

PATIENT
  Age: 72 Year
  Sex: Male
  Weight: 77 kg

DRUGS (6)
  1. AMOXICILLINE /00249602/ [Concomitant]
     Active Substance: AMOXICILLIN
  2. ACYCLOVIR /00587301/ [Concomitant]
     Active Substance: ACYCLOVIR
  3. FOSCAVIR [Suspect]
     Active Substance: FOSCARNET SODIUM
     Indication: MENINGOENCEPHALITIS HERPETIC
     Dosage: (5 G QD, INTRAVENOUS (NOT OTHERWISE SPECIFIED))
     Route: 042
     Dates: start: 20140911, end: 20140911
  4. CEFOTAXIME [Concomitant]
     Active Substance: CEFOTAXIME\CEFOTAXIME SODIUM
  5. KEPPRA [Concomitant]
     Active Substance: LEVETIRACETAM
  6. ZOVIRAX [Concomitant]
     Active Substance: ACYCLOVIR

REACTIONS (3)
  - Acute kidney injury [None]
  - Toxicity to various agents [None]
  - Overdose [None]

NARRATIVE: CASE EVENT DATE: 20140911
